FAERS Safety Report 23833185 (Version 1)
Quarter: 2024Q2

REPORT INFORMATION
  Report Type: Spontaneous
  Country: US (occurrence: US)
  Receive Date: 20240508
  Receipt Date: 20240508
  Transmission Date: 20240716
  Serious: Yes (Other)
  Sender: FDA-Public Use
  Company Number: US-BRAINTREE LABORATORIES, INC.-2024BTE00198

PATIENT
  Age: 57 Year
  Sex: Male
  Weight: 70.295 kg

DRUGS (2)
  1. PEG-3350, SODIUM CHLORIDE, SODIUM BICARBONATE AND POTASSIUM CHLORIDE [Suspect]
     Active Substance: POLYETHYLENE GLYCOL 3350\POTASSIUM CHLORIDE\SODIUM BICARBONATE\SODIUM CHLORIDE
     Indication: Colonoscopy
     Dosage: { 1.5 L, 1X
     Route: 048
     Dates: start: 20240408, end: 202404
  2. UNSPECIFIED INGREDIENT [Concomitant]
     Active Substance: UNSPECIFIED INGREDIENT

REACTIONS (4)
  - Blood pressure increased [Recovered/Resolved]
  - Blood sodium decreased [Unknown]
  - Dizziness [Recovered/Resolved]
  - Head discomfort [Recovered/Resolved]

NARRATIVE: CASE EVENT DATE: 20240408
